FAERS Safety Report 23956911 (Version 1)
Quarter: 2024Q2

REPORT INFORMATION
  Report Type: Spontaneous
  Country: US (occurrence: US)
  Receive Date: 20240610
  Receipt Date: 20240610
  Transmission Date: 20240716
  Serious: Yes (Other)
  Sender: FDA-Public Use
  Company Number: US-UCBSA-2024028461

PATIENT
  Sex: Male

DRUGS (4)
  1. ZILBRYSQ [Suspect]
     Active Substance: ZILUCOPLAN
     Indication: Myasthenia gravis
     Dosage: UNK DAILY FOR 3 WEEKS
  2. VYVGART [EFGARTIGIMOD ALFA] [Concomitant]
     Indication: Myasthenia gravis
     Dosage: UNK CYCLES EVERY 4 WEEKS
  3. PREDNISONE [Concomitant]
     Active Substance: PREDNISONE
     Indication: Myasthenia gravis
     Dosage: 40 MG ALTERNATING WITH 30 MG EVERY OTHER DAY
  4. MESTINON [Concomitant]
     Active Substance: PYRIDOSTIGMINE BROMIDE
     Indication: Myasthenia gravis
     Dosage: 90 MILLIGRAM, 3X/DAY (TID) )90 MG TID 8 AM, NOON, AND 5 PM)

REACTIONS (1)
  - Myasthenia gravis [Unknown]
